FAERS Safety Report 22051346 (Version 2)
Quarter: 2023Q1

REPORT INFORMATION
  Report Type: Report from Study
  Country: JP (occurrence: JP)
  Receive Date: 20230301
  Receipt Date: 20230323
  Transmission Date: 20230417
  Serious: Yes (Hospitalization, Other)
  Sender: FDA-Public Use
  Company Number: JP-TAKEDA-2023TJP002595

PATIENT
  Age: 3 Year
  Sex: Male

DRUGS (4)
  1. TEDUGLUTIDE [Suspect]
     Active Substance: TEDUGLUTIDE
     Indication: Short-bowel syndrome
     Dosage: UNK
     Route: 058
  2. TEDUGLUTIDE [Suspect]
     Active Substance: TEDUGLUTIDE
     Indication: Short-bowel syndrome
     Dosage: UNK
     Route: 058
  3. TEDUGLUTIDE [Suspect]
     Active Substance: TEDUGLUTIDE
     Indication: Short-bowel syndrome
     Dosage: UNK
     Route: 058
  4. TEDUGLUTIDE [Suspect]
     Active Substance: TEDUGLUTIDE
     Indication: Short-bowel syndrome
     Dosage: UNK
     Route: 058

REACTIONS (8)
  - Vascular device infection [Unknown]
  - Coronavirus infection [Unknown]
  - Diarrhoea [Not Recovered/Not Resolved]
  - Dermatitis diaper [Unknown]
  - Anal incontinence [Not Recovered/Not Resolved]
  - Sleep deficit [Unknown]
  - Vascular occlusion [Unknown]
  - Decreased appetite [Unknown]

NARRATIVE: CASE EVENT DATE: 20221101
